FAERS Safety Report 7251196-8 (Version None)
Quarter: 2011Q1

REPORT INFORMATION
  Report Type: 
  Country: None (occurrence: None)
  Receive Date: 20110105
  Receipt Date: 20101221
  Transmission Date: 20110831
  Serious: Yes (Hospitalization, Other)
  Sender: FDA-Public Use
  Company Number: 2010PROUSA00150

PATIENT
  Age: 79 Year
  Sex: Male
  Weight: 76.6 kg

DRUGS (11)
  1. BISACODYL (BISACODYL) ENTERIC TABLET [Concomitant]
  2. PROVENGE (SIPULEUCEL-T) SUSPENSION, 250ML [Suspect]
     Indication: PROSTATE CANCER METASTATIC
     Dosage: 250 ML, SINGLE, INTRAVENOUS
     Route: 042
     Dates: start: 20101206, end: 20101206
  3. PROVENGE (SIPULEUCEL-T) SUSPENSION, 250ML [Suspect]
     Indication: PROSTATE CANCER METASTATIC
     Dosage: 250 ML, SINGLE, INTRAVENOUS
     Route: 042
     Dates: start: 20101220, end: 20101220
  4. LUPRON DEPOT [Concomitant]
  5. GLUCOSAMINE COMPLEX /01555401/ (GLUCOSAMINE HYDROCHLORIDE, GLUCOSAMINE [Concomitant]
  6. PROVENCE (SIPULEUCEL-T) SUSPENSION, 250ML [Suspect]
  7. TYLENOL 8 HOUR (PARACETAMOL) [Concomitant]
  8. HYTRIN [Concomitant]
  9. FERROUS SULFATE TAB [Concomitant]
  10. DYAZIDE [Concomitant]
  11. ALEVE [Concomitant]

REACTIONS (12)
  - LEUKOPENIA [None]
  - DEHYDRATION [None]
  - ASPARTATE AMINOTRANSFERASE INCREASED [None]
  - METABOLIC DISORDER [None]
  - ACTIVATED PARTIAL THROMBOPLASTIN TIME PROLONGED [None]
  - METASTATIC NEOPLASM [None]
  - DYSARTHRIA [None]
  - INTERNATIONAL NORMALISED RATIO DECREASED [None]
  - APHASIA [None]
  - ANAEMIA [None]
  - TRANSIENT ISCHAEMIC ATTACK [None]
  - BLOOD ALKALINE PHOSPHATASE INCREASED [None]
